FAERS Safety Report 18398160 (Version 4)
Quarter: 2021Q2

REPORT INFORMATION
  Report Type: Report from Study
  Country: FR (occurrence: FR)
  Receive Date: 20201019
  Receipt Date: 20210623
  Transmission Date: 20210717
  Serious: Yes (Hospitalization)
  Sender: FDA-Public Use
  Company Number: FR-JNJFOC-20201009950

PATIENT
  Age: 66 Year
  Sex: Female
  Weight: 41 kg

DRUGS (6)
  1. ERDAFITINIB. [Suspect]
     Active Substance: ERDAFITINIB
     Indication: TRANSITIONAL CELL CARCINOMA
     Route: 048
     Dates: start: 20200812, end: 20200812
  2. ERDAFITINIB. [Suspect]
     Active Substance: ERDAFITINIB
     Route: 048
     Dates: start: 20201021, end: 20210106
  3. ERDAFITINIB. [Suspect]
     Active Substance: ERDAFITINIB
     Indication: RENAL CANCER METASTATIC
     Dosage: REPORTED AS STOPPED ON 30?SEP?2020 DUE AE
     Route: 048
     Dates: start: 20200729, end: 20200811
  4. ERDAFITINIB. [Suspect]
     Active Substance: ERDAFITINIB
     Route: 048
     Dates: start: 20200813, end: 20200922
  5. ERDAFITINIB. [Suspect]
     Active Substance: ERDAFITINIB
     Route: 048
     Dates: start: 20200923, end: 20200929
  6. ERDAFITINIB. [Suspect]
     Active Substance: ERDAFITINIB
     Route: 048
     Dates: start: 20200930, end: 20201020

REACTIONS (1)
  - Erythema [Recovered/Resolved]

NARRATIVE: CASE EVENT DATE: 20201005
